FAERS Safety Report 8378157-X (Version None)
Quarter: 2012Q2

REPORT INFORMATION
  Report Type: 
  Country: None (occurrence: None)
  Receive Date: 20120522
  Receipt Date: 20120521
  Transmission Date: 20120825
  Serious: No
  Sender: FDA-Public Use
  Company Number: US-PFIZER INC-2012123057

PATIENT
  Sex: Female
  Weight: 56.236 kg

DRUGS (6)
  1. LYRICA [Suspect]
     Indication: FIBROMYALGIA
     Dosage: 50 MG, 2X/DAY
     Route: 048
  2. LYRICA [Suspect]
     Dosage: 100 MG, 2X/DAY
  3. BRIMONIDINE [Concomitant]
     Indication: GLAUCOMA
     Dosage: UNK, 2X/DAY
     Route: 047
  4. OMEPRAZOLE [Concomitant]
     Indication: GASTROOESOPHAGEAL REFLUX DISEASE
     Dosage: UNK
  5. LYRICA [Suspect]
     Dosage: 75 MG, 2X/DAY
     Route: 048
  6. PRAVASTATIN [Concomitant]
     Indication: BLOOD CHOLESTEROL INCREASED
     Dosage: UNK

REACTIONS (2)
  - INSOMNIA [None]
  - ARTHRALGIA [None]
